FAERS Safety Report 8408263-2 (Version None)
Quarter: 2012Q2

REPORT INFORMATION
  Report Type: 
  Country: None (occurrence: None)
  Receive Date: 20120604
  Receipt Date: 20120529
  Transmission Date: 20120825
  Serious: Yes (Other)
  Sender: FDA-Public Use
  Company Number: US-B.I. PHARMACEUTICALS,INC./RIDGEFIELD-2012-EU-02917GD

PATIENT

DRUGS (2)
  1. DABIGATRAN [Suspect]
     Indication: ATRIAL FIBRILLATION
  2. DABIGATRAN [Suspect]
     Indication: CEREBROVASCULAR ACCIDENT PROPHYLAXIS
     Dosage: 300 MG
     Route: 048

REACTIONS (1)
  - ATRIAL THROMBOSIS [None]
